FAERS Safety Report 4332753-5 (Version None)
Quarter: 2004Q1

REPORT INFORMATION
  Report Type: 
  Country: None (occurrence: None)
  Receive Date: 20040330
  Receipt Date: 20040318
  Transmission Date: 20041129
  Serious: Yes (Hospitalization)
  Sender: FDA-Public Use
  Company Number: 04P-163-0253943-00

PATIENT
  Age: 76 Year
  Sex: Female

DRUGS (4)
  1. HUMIRA [Suspect]
     Indication: RHEUMATOID ARTHRITIS
     Dosage: 40 MG, 1 IN 2 WK, SUBCUTANEOUS
     Route: 058
     Dates: start: 20040112, end: 20040201
  2. METHOTREXATE [Concomitant]
  3. COX 2 INHIBITORS [Concomitant]
  4. PREDNISONE [Concomitant]

REACTIONS (6)
  - COLON CANCER [None]
  - METASTASES TO LIVER [None]
  - OEDEMA [None]
  - PANCREATIC DISORDER [None]
  - PERITONEAL CARCINOMA [None]
  - PERITONITIS [None]
